FAERS Safety Report 8164287-4 (Version None)
Quarter: 2012Q1

REPORT INFORMATION
  Report Type: 
  Country: None (occurrence: None)
  Receive Date: 20120224
  Receipt Date: 20120220
  Transmission Date: 20120608
  Serious: Yes (Other)
  Sender: FDA-Public Use
  Company Number: FR-PFIZER INC-2012045127

PATIENT
  Age: 38 Year
  Sex: Female

DRUGS (3)
  1. XANAX [Suspect]
     Dosage: UNK
     Dates: start: 20111004
  2. STABLON [Concomitant]
     Dosage: UNK
     Dates: start: 20111004
  3. CYCLEANE [Concomitant]
     Dosage: 20 A?G PER DAY
     Route: 048
     Dates: start: 20110911

REACTIONS (3)
  - INSOMNIA [None]
  - HYPERSOMNIA [None]
  - MYOCLONUS [None]
